FAERS Safety Report 9402317 (Version 2)
Quarter: 2013Q3

REPORT INFORMATION
  Report Type: Spontaneous
  Country: US (occurrence: US)
  Receive Date: 20130716
  Receipt Date: 20130827
  Transmission Date: 20140515
  Serious: Yes (Other)
  Sender: FDA-Public Use
  Company Number: US-PFIZER INC-2013204947

PATIENT
  Age: 69 Year
  Sex: Male
  Weight: 109.75 kg

DRUGS (2)
  1. SUTENT [Suspect]
     Indication: RENAL CANCER
     Dosage: 50 MG, (4WKS ON 2 WKS OFF)
     Route: 048
     Dates: start: 20121030
  2. SUTENT [Suspect]
     Dosage: 50 MG, UNK
     Dates: start: 20130409

REACTIONS (11)
  - Renal failure acute [Unknown]
  - Disease progression [Not Recovered/Not Resolved]
  - Renal cell carcinoma [Unknown]
  - Hypertension [Unknown]
  - Anaemia [Unknown]
  - Thrombocytopenia [Unknown]
  - Leukopenia [Unknown]
  - Fatigue [Unknown]
  - Oedema peripheral [Unknown]
  - Cough [Not Recovered/Not Resolved]
  - Arthralgia [Not Recovered/Not Resolved]
